FAERS Safety Report 13181749 (Version 1)
Quarter: 2017Q1

REPORT INFORMATION
  Report Type: Spontaneous
  Country: FR (occurrence: FR)
  Receive Date: 20170202
  Receipt Date: 20170202
  Transmission Date: 20170428
  Serious: Yes (Hospitalization)
  Sender: FDA-Public Use
  Company Number: FR-SA-2017SA015721

PATIENT
  Age: 67 Year
  Sex: Female

DRUGS (6)
  1. FLUDARA [Suspect]
     Active Substance: FLUDARABINE PHOSPHATE
     Indication: CHRONIC LYMPHOCYTIC LEUKAEMIA
     Route: 048
     Dates: start: 20161102, end: 20161209
  2. ORACILLINE [Concomitant]
     Active Substance: PENICILLIN V
  3. MABTHERA [Suspect]
     Active Substance: RITUXIMAB
     Indication: CHRONIC LYMPHOCYTIC LEUKAEMIA
     Dosage: 17.8571 MG / M2, 500 MG / M2.1 IN 4 WEEK (S)
     Route: 041
     Dates: start: 20161102, end: 20161206
  4. VALACICLOVIR [Concomitant]
     Active Substance: VALACYCLOVIR HYDROCHLORIDE
  5. ENDOXAN [Suspect]
     Active Substance: CYCLOPHOSPHAMIDE
     Indication: CHRONIC LYMPHOCYTIC LEUKAEMIA
     Dosage: 400MG / D ON 3 DAYS AFTER TAKING RITUXIMAB (400 MG, 3 IN 1 CYCLE)
     Route: 048
     Dates: start: 20161102, end: 20161209
  6. BACTRIM [Concomitant]
     Active Substance: SULFAMETHOXAZOLE\TRIMETHOPRIM
     Dosage: 3/WEEK
     Dates: end: 20161223

REACTIONS (1)
  - Agranulocytosis [Not Recovered/Not Resolved]

NARRATIVE: CASE EVENT DATE: 20161219
